FAERS Safety Report 9027928 (Version 1)
Quarter: 2013Q1

REPORT INFORMATION
  Report Type: Report from Study
  Country: US (occurrence: US)
  Receive Date: 20130123
  Receipt Date: 20130123
  Transmission Date: 20140127
  Serious: Yes (Death, Life-Threatening, Hospitalization, Other)
  Sender: FDA-Public Use
  Company Number: US-TEVA-381359USA

PATIENT
  Age: 50 Year
  Sex: Female
  Weight: 53.75 kg

DRUGS (16)
  1. PRAZOSIN [Suspect]
     Indication: HYPERTENSION
     Dosage: 1 MILLIGRAM DAILY;
     Route: 048
     Dates: start: 20120810
  2. DACOMITINIB [Suspect]
     Indication: NON-SMALL CELL LUNG CANCER
     Dosage: 45 MILLIGRAM DAILY;
     Route: 048
     Dates: start: 20120726, end: 20120822
  3. DOXYCYCLINE [Suspect]
     Indication: NON-SMALL CELL LUNG CANCER
     Dosage: 400 MILLIGRAM DAILY;
     Route: 048
     Dates: start: 20120726, end: 20120822
  4. MORPHINE SULFATE [Suspect]
     Indication: PAIN
     Dosage: 60 MILLIGRAM DAILY;
     Route: 048
     Dates: start: 20120327
  5. OXYCODONE [Suspect]
     Indication: PAIN
     Dosage: 180 MILLIGRAM DAILY;
     Route: 048
     Dates: start: 20120810
  6. DULOXETINE HYDROCHLORIDE [Suspect]
     Indication: BIPOLAR DISORDER
     Dosage: 120 MILLIGRAM DAILY;
     Route: 048
     Dates: start: 20120327
  7. BUPROPION HYDROCHLORIDE [Suspect]
     Indication: BIPOLAR DISORDER
     Dosage: 300 MILLIGRAM DAILY;
     Route: 048
     Dates: start: 20120327
  8. OLANZAPINE [Suspect]
     Indication: BIPOLAR DISORDER
     Dosage: 20 MILLIGRAM DAILY; ^7.5^
     Route: 048
     Dates: start: 20120327
  9. TOPIRAMATE [Suspect]
     Indication: BIPOLAR DISORDER
     Dosage: 50 MILLIGRAM DAILY;
     Route: 048
     Dates: start: 20120329
  10. CLONAZEPAM [Suspect]
     Indication: BIPOLAR DISORDER
     Dosage: .5 MILLIGRAM DAILY;
     Route: 048
     Dates: start: 20120327
  11. OXYCODONE HYDROCHLORIDE [Suspect]
     Indication: PAIN
     Dosage: 40 MILLIGRAM DAILY;
     Route: 048
     Dates: start: 20120810
  12. TYLOX [Suspect]
     Indication: BIPOLAR DISORDER
     Dosage: 1300 MILLIGRAM DAILY; ^5^
     Route: 048
     Dates: start: 20120327
  13. IRON [Concomitant]
     Indication: PROPHYLAXIS
  14. CYANOCOBALAMIN [Concomitant]
     Indication: PROPHYLAXIS
  15. CALCIUM CITRATE [Concomitant]
     Indication: PROPHYLAXIS
  16. FOLIC ACID [Concomitant]
     Indication: PROPHYLAXIS

REACTIONS (2)
  - Gastrointestinal haemorrhage [Fatal]
  - Hypovolaemic shock [Fatal]
